FAERS Safety Report 8448710-3 (Version None)
Quarter: 2012Q2

REPORT INFORMATION
  Report Type: 
  Country: None (occurrence: None)
  Receive Date: 20120619
  Receipt Date: 20120618
  Transmission Date: 20120825
  Serious: No
  Sender: FDA-Public Use
  Company Number: BR-ROCHE-769990

PATIENT
  Sex: Female
  Weight: 68 kg

DRUGS (2)
  1. BLINDED PERTUZUMAB [Suspect]
     Indication: BREAST CANCER METASTATIC
     Route: 042
  2. TRASTUZUMAB EMTANSINE [Suspect]
     Indication: BREAST CANCER METASTATIC
     Route: 042
     Dates: start: 20110223

REACTIONS (1)
  - LEFT VENTRICULAR DYSFUNCTION [None]
